FAERS Safety Report 9678194 (Version 2)
Quarter: 2013Q4

REPORT INFORMATION
  Report Type: Spontaneous
  Country: HU (occurrence: HU)
  Receive Date: 20131108
  Receipt Date: 20131108
  Transmission Date: 20140711
  Serious: Yes (Hospitalization)
  Sender: FDA-Public Use
  Company Number: PHHY2013HU121320

PATIENT
  Age: 65 Year
  Sex: Male

DRUGS (12)
  1. CLOMIPRAMINE [Suspect]
     Indication: DEPRESSION
     Dosage: 150 MG, DAILY
     Dates: start: 2011, end: 20120124
  2. CLOMIPRAMINE [Suspect]
     Indication: DECREASED ACTIVITY
  3. MIRTAZAPINE [Suspect]
     Indication: DEPRESSION
     Dosage: 45 MG, UNK
  4. MIRTAZAPINE [Suspect]
     Dosage: 30 MG, UNK
     Dates: start: 2012
  5. VENLAFAXINE [Suspect]
     Indication: DEPRESSION
     Dosage: 150 MG, UNK
  6. VENLAFAXINE [Suspect]
     Dosage: 75 MG, PER DAY
     Dates: start: 20120124
  7. VENLAFAXINE [Suspect]
     Dosage: 150 MG, UNK
  8. PIRACETAM [Concomitant]
     Dosage: 2400 MG, PER DAY
  9. SELEGILINE [Concomitant]
     Dosage: 10 MG, PER DAY
  10. ALPRAZOLAM [Concomitant]
     Dosage: 3 MG, PER DAY
  11. LEVOTHYROXINE [Concomitant]
     Dosage: 25 UG, UNK
  12. OXYBUTYNIN [Concomitant]
     Dosage: 5 MG, DAILY

REACTIONS (4)
  - Depression [Unknown]
  - Hyponatraemia [Recovered/Resolved]
  - Loss of consciousness [Recovered/Resolved]
  - Drug ineffective [Unknown]
